FAERS Safety Report 16520087 (Version 3)
Quarter: 2020Q3

REPORT INFORMATION
  Report Type: Report from Study
  Country: BR (occurrence: BR)
  Receive Date: 20190702
  Receipt Date: 20200902
  Transmission Date: 20201102
  Serious: Yes (Death, Other)
  Sender: FDA-Public Use
  Company Number: BR-BAYER-2019-067138

PATIENT
  Age: 69 Year
  Sex: Female

DRUGS (6)
  1. PURAN [Concomitant]
     Active Substance: LEVOTHYROXINE SODIUM
  2. CALCIUM [Concomitant]
     Active Substance: CALCIUM
     Indication: BONE DISORDER
  3. NEXAVAR [Suspect]
     Active Substance: SORAFENIB
     Indication: THYROID CANCER
     Dosage: 3 DF, QD ? SECOND WEEK
     Route: 048
     Dates: start: 20190415, end: 20190418
  4. NEXAVAR [Suspect]
     Active Substance: SORAFENIB
     Indication: THYROID CANCER
     Dosage: UNK
     Dates: end: 20190610
  5. LOSARTAN. [Concomitant]
     Active Substance: LOSARTAN
     Indication: HYPERTENSION
     Dosage: 2 DF, QD
     Route: 048
  6. NEXAVAR [Suspect]
     Active Substance: SORAFENIB
     Indication: THYROID CANCER
     Dosage: 2 DF, QD ? FIRST WEEK
     Route: 048
     Dates: start: 20190407

REACTIONS (10)
  - Condition aggravated [None]
  - Cardiac arrest [Fatal]
  - Off label use [None]
  - Decreased appetite [Not Recovered/Not Resolved]
  - Oropharyngeal pain [Recovering/Resolving]
  - Asthenia [None]
  - Feeding disorder [None]
  - Dysphagia [Recovering/Resolving]
  - Speech disorder [Recovering/Resolving]
  - Nausea [Not Recovered/Not Resolved]

NARRATIVE: CASE EVENT DATE: 20190409
